FAERS Safety Report 5064820-5 (Version None)
Quarter: 2006Q3

REPORT INFORMATION
  Report Type: 
  Country: None (occurrence: None)
  Receive Date: 20060728
  Receipt Date: 20060601
  Transmission Date: 20061208
  Serious: Yes (Hospitalization)
  Sender: FDA-Public Use
  Company Number: PHNU2006DE02170

PATIENT
  Age: 44 Year
  Sex: Male
  Weight: 86 kg

DRUGS (6)
  1. COTRIM DS [Concomitant]
     Dosage: UNK, QW3
     Dates: start: 20060101
  2. NEXIUM [Concomitant]
     Dosage: 40 MG DAILY
     Dates: start: 20060101
  3. ACYCLOVIR [Concomitant]
     Dosage: 1200 MG DAILY
     Route: 048
  4. MAGNEROT [Concomitant]
     Indication: HYPOMAGNESAEMIA
  5. SANDIMMUNE [Suspect]
     Indication: APLASTIC ANAEMIA
     Dosage: 300 MG DAILY
     Route: 048
     Dates: start: 20051101
  6. TAVANIC [Concomitant]
     Dosage: 500 MG DAILY
     Route: 048
     Dates: start: 20060101

REACTIONS (6)
  - ARTHRALGIA [None]
  - BONE PAIN [None]
  - LIVER FUNCTION TEST ABNORMAL [None]
  - MUSCULOSKELETAL PAIN [None]
  - MYALGIA [None]
  - RENAL DISORDER [None]
